FAERS Safety Report 10861323 (Version 1)
Quarter: 2015Q1

REPORT INFORMATION
  Report Type: Report from Study
  Country: GB (occurrence: GB)
  Receive Date: 20150224
  Receipt Date: 20150224
  Transmission Date: 20150721
  Serious: Yes (Other)
  Sender: FDA-Public Use
  Company Number: GB-JNJFOC-20140811216

PATIENT
  Age: 42 Year
  Sex: Female
  Weight: 165 kg

DRUGS (5)
  1. CITALOPRAM [Concomitant]
     Active Substance: CITALOPRAM HYDROBROMIDE
     Route: 048
     Dates: start: 20140916
  2. SALBUTAMOL [Concomitant]
     Active Substance: ALBUTEROL
     Route: 065
     Dates: start: 20130930
  3. STELARA [Suspect]
     Active Substance: USTEKINUMAB
     Indication: PSORIASIS
     Route: 058
     Dates: start: 20130412
  4. NAPROXEN. [Concomitant]
     Active Substance: NAPROXEN
     Route: 065
     Dates: start: 20120724
  5. LANSOPRAZOLE. [Concomitant]
     Active Substance: LANSOPRAZOLE
     Route: 048
     Dates: start: 20130121

REACTIONS (16)
  - Poor dental condition [Unknown]
  - Breast swelling [Recovered/Resolved]
  - Stress [Unknown]
  - Osteoarthritis [Unknown]
  - Discomfort [Unknown]
  - Cellulitis [Recovering/Resolving]
  - Arthritis [Unknown]
  - Pruritus [Unknown]
  - Nausea [Unknown]
  - Breast tenderness [Unknown]
  - Anxiety [Unknown]
  - Lower respiratory tract infection [Recovering/Resolving]
  - Depression [Unknown]
  - Breast discharge [Recovered/Resolved]
  - Fatigue [Unknown]
  - Fluid retention [Unknown]

NARRATIVE: CASE EVENT DATE: 201307
